FAERS Safety Report 5688963-8 (Version None)
Quarter: 2008Q1

REPORT INFORMATION
  Report Type: 
  Country: None (occurrence: None)
  Receive Date: 20080331
  Receipt Date: 20080320
  Transmission Date: 20080703
  Serious: Yes (Other)
  Sender: FDA-Public Use
  Company Number: CN-BAYER-200813835GPV

PATIENT
  Age: 21 Year
  Sex: Male

DRUGS (1)
  1. ULTRAVIST 300 [Suspect]
     Indication: SCAN BRAIN
     Route: 013
     Dates: start: 20080220, end: 20080220

REACTIONS (2)
  - COMA [None]
  - RASH [None]
